FAERS Safety Report 10059894 (Version 2)
Quarter: 2014Q2

REPORT INFORMATION
  Report Type: Spontaneous
  Country: CA (occurrence: CA)
  Receive Date: 20140404
  Receipt Date: 20140416
  Transmission Date: 20141212
  Serious: Yes (Other)
  Sender: FDA-Public Use
  Company Number: CA-GLAXOSMITHKLINE-A1067554A

PATIENT
  Age: 73 Year
  Sex: Male
  Weight: 77.3 kg

DRUGS (9)
  1. AVODART [Suspect]
     Indication: BENIGN PROSTATIC HYPERPLASIA
     Dosage: .5MG PER DAY
     Route: 048
     Dates: start: 20110302, end: 20130318
  2. PROSCAR [Concomitant]
     Route: 065
     Dates: start: 2008, end: 201103
  3. MICARDIS PLUS [Concomitant]
  4. DETROL LA [Concomitant]
  5. XATRAL [Concomitant]
  6. VIAGRA [Concomitant]
  7. SENOKOT [Concomitant]
  8. VITAMIN C [Concomitant]
  9. RAPAFLO [Concomitant]

REACTIONS (13)
  - Invasive ductal breast carcinoma [Not Recovered/Not Resolved]
  - Oestrogen receptor positive breast cancer [Not Recovered/Not Resolved]
  - Gynaecomastia [Unknown]
  - Biopsy lymph gland abnormal [Unknown]
  - Breast mass [Unknown]
  - Lymphadenopathy [Unknown]
  - Retracted nipple [Unknown]
  - Skin necrosis [Unknown]
  - Hepatic cyst [Unknown]
  - Pulmonary mass [Unknown]
  - Blood bilirubin increased [Unknown]
  - Progesterone receptor assay positive [Unknown]
  - Skin lesion [Unknown]
